FAERS Safety Report 19899480 (Version 1)
Quarter: 2021Q3

REPORT INFORMATION
  Report Type: Spontaneous
  Country: US (occurrence: US)
  Receive Date: 20210929
  Receipt Date: 20210929
  Transmission Date: 20211014
  Serious: No
  Sender: FDA-Public Use
  Company Number: US-AMGEN-USASP2021146778

PATIENT
  Sex: Female

DRUGS (1)
  1. REPATHA [Suspect]
     Active Substance: EVOLOCUMAB
     Indication: PRODUCT USED FOR UNKNOWN INDICATION
     Dosage: 420 MILLIGRAM, QMO
     Route: 065
     Dates: start: 20210807

REACTIONS (12)
  - Nasal congestion [Unknown]
  - Vision blurred [Unknown]
  - Dyspnoea [Unknown]
  - Myalgia [Unknown]
  - Injection site pain [Unknown]
  - Diarrhoea [Unknown]
  - Abnormal dreams [Unknown]
  - Injection site bruising [Recovered/Resolved]
  - Dizziness [Unknown]
  - Fatigue [Unknown]
  - Injection site swelling [Unknown]
  - Heart rate increased [Unknown]

NARRATIVE: CASE EVENT DATE: 202108
